FAERS Safety Report 4490595-4 (Version None)
Quarter: 2004Q4

REPORT INFORMATION
  Report Type: 
  Country: None (occurrence: None)
  Receive Date: 20041102
  Receipt Date: 20041022
  Transmission Date: 20050328
  Serious: Yes (Disabling)
  Sender: FDA-Public Use
  Company Number: US-MERCK-0410USA03615

PATIENT
  Age: 42 Year
  Sex: Female

DRUGS (3)
  1. VIOXX [Suspect]
     Indication: BACK PAIN
     Route: 048
     Dates: start: 20020101, end: 20040930
  2. HORMONAL CONTRACEPTIVES (UNSPECIFIED) [Concomitant]
     Route: 065
  3. HORMONAL CONTRACEPTIVES (UNSPECIFIED) [Concomitant]
     Route: 065

REACTIONS (1)
  - HEART RATE IRREGULAR [None]
